FAERS Safety Report 8402991 (Version 2)
Quarter: 2014Q4

REPORT INFORMATION
  Report Type: Spontaneous
  Country: US (occurrence: US)
  Receive Date: 20120213
  Receipt Date: 20141104
  Transmission Date: 20150529
  Serious: Yes (Hospitalization, Other)
  Sender: FDA-Public Use
  Company Number: US-GLAXOSMITHKLINE-B0723152A

PATIENT
  Sex: Male

DRUGS (1)
  1. AVANDIA [Suspect]
     Active Substance: ROSIGLITAZONE MALEATE
     Indication: DIABETES MELLITUS
     Dosage: 8 MG, QD
     Route: 048
     Dates: start: 199908, end: 200712

REACTIONS (7)
  - Ventricular extrasystoles [Unknown]
  - Macular oedema [Unknown]
  - Myocardial infarction [Not Recovered/Not Resolved]
  - Amblyopia [Unknown]
  - Cardiomyopathy [Unknown]
  - Blindness [Unknown]
  - Cataract [Unknown]
